FAERS Safety Report 16773639 (Version 1)
Quarter: 2019Q3

REPORT INFORMATION
  Report Type: Report from Study
  Country: US (occurrence: US)
  Receive Date: 20190904
  Receipt Date: 20190904
  Transmission Date: 20191005
  Serious: Yes (Other)
  Sender: FDA-Public Use
  Company Number: US-ALEXION PHARMACEUTICALS INC.-A201913120

PATIENT
  Sex: Female

DRUGS (1)
  1. SOLIRIS [Suspect]
     Active Substance: ECULIZUMAB
     Indication: MYASTHENIA GRAVIS
     Dosage: UNK
     Route: 065

REACTIONS (6)
  - Eye haemorrhage [Unknown]
  - Poor venous access [Unknown]
  - Skin abrasion [Not Recovered/Not Resolved]
  - Blindness transient [Recovering/Resolving]
  - Fall [Not Recovered/Not Resolved]
  - Contusion [Unknown]

NARRATIVE: CASE EVENT DATE: 20190519
